FAERS Safety Report 24388183 (Version 1)
Quarter: 2024Q4

REPORT INFORMATION
  Report Type: Spontaneous
  Country: KR (occurrence: KR)
  Receive Date: 20241002
  Receipt Date: 20241002
  Transmission Date: 20250115
  Serious: Yes (Other)
  Sender: Alora Pharma
  Company Number: KR-OSMOTICA PHARMACEUTICALS-2024ALO00468

PATIENT
  Sex: Female

DRUGS (2)
  1. NIFEDIPINE [Suspect]
     Active Substance: NIFEDIPINE
     Indication: Premature labour
     Route: 048
  2. INSULIN NOS [Concomitant]
     Active Substance: INSULIN NOS
     Dosage: 13 PATIENTS

REACTIONS (2)
  - Hyperglycaemia [Unknown]
  - Product use in unapproved indication [Unknown]
